FAERS Safety Report 6470457-3 (Version None)
Quarter: 2009Q4

REPORT INFORMATION
  Report Type: 
  Country: None (occurrence: None)
  Receive Date: 20091202
  Receipt Date: 20091202
  Transmission Date: 20100525
  Serious: Yes (Hospitalization)
  Sender: FDA-Public Use
  Company Number: None

PATIENT
  Age: 87 Year
  Sex: Female
  Weight: 85 kg

DRUGS (1)
  1. OLANZAPINE [Suspect]
     Indication: AGITATION
     Dosage: 2.5-5 MG Q8H PRN PO  : 2.5 MG Q4H PRN PO
     Route: 048
     Dates: start: 20091117, end: 20091128

REACTIONS (4)
  - AGITATION [None]
  - AKATHISIA [None]
  - EXTRAPYRAMIDAL DISORDER [None]
  - NEUROLEPTIC MALIGNANT SYNDROME [None]
